FAERS Safety Report 21471023 (Version 1)
Quarter: 2022Q4

REPORT INFORMATION
  Report Type: Report from Study
  Country: CA (occurrence: CA)
  Receive Date: 20221018
  Receipt Date: 20221018
  Transmission Date: 20230113
  Serious: Yes (Other)
  Sender: FDA-Public Use
  Company Number: CA-BAUSCH-BL-2022-006344

PATIENT
  Sex: Female

DRUGS (7)
  1. CONTRAVE [Suspect]
     Active Substance: BUPROPION HYDROCHLORIDE\NALTREXONE HYDROCHLORIDE
     Indication: Weight control
     Dosage: 90MG/8MG, WEEK 1 (1 TAB Q AM)
     Route: 048
     Dates: start: 20220227, end: 20220305
  2. CONTRAVE [Suspect]
     Active Substance: BUPROPION HYDROCHLORIDE\NALTREXONE HYDROCHLORIDE
     Dosage: 90MG/8MG, WEEK 2 (1 TAB Q AM, 1 TAB Q PM)
     Route: 048
     Dates: start: 20220306, end: 2022
  3. CONTRAVE [Suspect]
     Active Substance: BUPROPION HYDROCHLORIDE\NALTREXONE HYDROCHLORIDE
     Dosage: 90MG/8MG, WEEK 2 (1 TAB Q AM, 1 TAB Q NOON, 1 TAB Q PM)
     Route: 048
     Dates: start: 20220516, end: 2022
  4. CONTRAVE [Suspect]
     Active Substance: BUPROPION HYDROCHLORIDE\NALTREXONE HYDROCHLORIDE
     Dosage: 90MG/8MG, 2TAB QAM 1TAB QPM
     Route: 048
     Dates: start: 2022, end: 2022
  5. CONTRAVE [Suspect]
     Active Substance: BUPROPION HYDROCHLORIDE\NALTREXONE HYDROCHLORIDE
     Dosage: 90MG/8MG, WENT TO 2 (PILLS) FOR 2 WEEKS (1 DOSAGE FORMS,1 IN 12 HR)
     Route: 048
     Dates: start: 2022, end: 2022
  6. CONTRAVE [Suspect]
     Active Substance: BUPROPION HYDROCHLORIDE\NALTREXONE HYDROCHLORIDE
     Dosage: 90MG/8MG, 1 PILL (1 DOSAGE FORMS,1 IN 1 D)
     Route: 048
     Dates: start: 2022, end: 202209
  7. CIPRALEX [Concomitant]
     Active Substance: ESCITALOPRAM OXALATE
     Indication: Anxiety
     Dosage: UNK
     Route: 048

REACTIONS (15)
  - Heart rate increased [Recovered/Resolved]
  - Affective disorder [Recovered/Resolved]
  - Dry mouth [Recovering/Resolving]
  - Nausea [Not Recovered/Not Resolved]
  - Anxiety [Recovered/Resolved]
  - Hyperhidrosis [Recovering/Resolving]
  - Feeling abnormal [Recovering/Resolving]
  - Therapy cessation [Unknown]
  - Contraindicated product prescribed [Unknown]
  - Labelled drug-disease interaction medication error [Unknown]
  - Drug titration error [Unknown]
  - Product prescribing error [Unknown]
  - Product dose omission issue [Unknown]
  - Patient dissatisfaction with treatment [Unknown]
  - Intentional product use issue [Unknown]

NARRATIVE: CASE EVENT DATE: 20220101
